FAERS Safety Report 8609284-7 (Version None)
Quarter: 2012Q3

REPORT INFORMATION
  Report Type: 
  Country: None (occurrence: None)
  Receive Date: 20120821
  Receipt Date: 20120814
  Transmission Date: 20120928
  Serious: Yes (Other)
  Sender: FDA-Public Use
  Company Number: PHHY2012BR071502

PATIENT
  Age: 88 Year
  Sex: Male

DRUGS (2)
  1. EXELON [Suspect]
     Indication: DEMENTIA ALZHEIMER'S TYPE
     Dosage: 4.6 MG/ 24 HRS
     Route: 062
  2. EXELON [Suspect]
     Dosage: 9.5 MG/ 24 HRS
     Route: 062

REACTIONS (3)
  - HYPERSENSITIVITY [None]
  - APPLICATION SITE BURN [None]
  - PRURITUS [None]
